FAERS Safety Report 4720230-9 (Version None)
Quarter: 2005Q3

REPORT INFORMATION
  Report Type: 
  Country: None (occurrence: None)
  Receive Date: 20050719
  Receipt Date: 20050708
  Transmission Date: 20060218
  Serious: Yes (Other)
  Sender: FDA-Public Use
  Company Number: TCI2005A03141

PATIENT
  Age: 71 Year
  Sex: Male

DRUGS (8)
  1. ACTOS [Suspect]
     Indication: DIABETES MELLITUS
     Dosage: 15 + 30 + 15 MG (15 MG, 1 D)
     Dates: start: 20050201, end: 20050601
  2. ACTOS [Suspect]
     Indication: DIABETES MELLITUS
     Dosage: 15 + 30 + 15 MG (15 MG, 1 D)
     Dates: start: 20050601, end: 20050628
  3. ACTOS [Suspect]
     Indication: DIABETES MELLITUS
     Dosage: 15 + 30 + 15 MG (15 MG, 1 D)
     Dates: start: 20050629
  4. BASEN (VOGLIBOSE) [Concomitant]
  5. AMALYL (GLIMEPIRIDE) [Concomitant]
  6. DILTIAZEM HYDROCHLORIDE [Concomitant]
  7. NU LOTAN (LOSARTAN POTASSIUM) [Concomitant]
  8. NITROL R (GLYCERYL TRINITRATE) [Concomitant]

REACTIONS (1)
  - PLEURAL EFFUSION [None]
